FAERS Safety Report 16421729 (Version 1)
Quarter: 2019Q2

REPORT INFORMATION
  Report Type: Spontaneous
  Country: US (occurrence: US)
  Receive Date: 20190612
  Receipt Date: 20190612
  Transmission Date: 20190711
  Serious: Yes (Life-Threatening)
  Sender: FDA-Public Use
  Company Number: PHEH2019US024492

PATIENT
  Sex: Female

DRUGS (1)
  1. GLATOPA [Suspect]
     Active Substance: GLATIRAMER ACETATE
     Indication: PRODUCT USED FOR UNKNOWN INDICATION
     Dosage: 40 MG, QW3
     Route: 065
     Dates: start: 20190609

REACTIONS (3)
  - Dyspnoea [Unknown]
  - Feeling abnormal [Unknown]
  - Generalised erythema [Unknown]

NARRATIVE: CASE EVENT DATE: 20190609
